FAERS Safety Report 13088415 (Version 1)
Quarter: 2017Q1

REPORT INFORMATION
  Report Type: Spontaneous
  Country: US (occurrence: US)
  Receive Date: 20170104
  Receipt Date: 20170104
  Transmission Date: 20170428
  Serious: No
  Sender: FDA-Public Use
  Company Number: None

PATIENT
  Age: 56 Year
  Sex: Female
  Weight: 65.25 kg

DRUGS (3)
  1. DEXTROAMPHETAMINE ER CAPSULE MALLINCKRODT= [Suspect]
     Active Substance: DEXTROAMPHETAMINE SULFATE
     Indication: ATTENTION DEFICIT/HYPERACTIVITY DISORDER
     Dosage: ?          QUANTITY:120 CAPSULE(S);?
     Route: 048
  2. TRAMADOL. [Concomitant]
     Active Substance: TRAMADOL
  3. EXCEDRINE [Concomitant]

REACTIONS (4)
  - Drug effect decreased [None]
  - Product substitution issue [None]
  - Headache [None]
  - Product taste abnormal [None]

NARRATIVE: CASE EVENT DATE: 20161010
